FAERS Safety Report 4334700-9 (Version None)
Quarter: 2004Q2

REPORT INFORMATION
  Report Type: 
  Country: None (occurrence: None)
  Receive Date: 20040407
  Receipt Date: 20040407
  Transmission Date: 20050107
  Serious: Yes (Life-Threatening, Hospitalization)
  Sender: FDA-Public Use
  Company Number: None

PATIENT
  Sex: Male

DRUGS (1)
  1. CETACAINE [Suspect]
     Indication: PAIN
     Dosage: SPRAY FREQUENTLY TOPICAL
     Route: 061
     Dates: start: 20040114, end: 20040201

REACTIONS (2)
  - ACQUIRED METHAEMOGLOBINAEMIA [None]
  - HAEMOLYTIC ANAEMIA [None]
